FAERS Safety Report 4776405-6 (Version None)
Quarter: 2005Q3

REPORT INFORMATION
  Report Type: 
  Country: None (occurrence: None)
  Receive Date: 20050921
  Receipt Date: 20050905
  Transmission Date: 20060218
  Serious: Yes (Hospitalization)
  Sender: FDA-Public Use
  Company Number: FR_050907069

PATIENT
  Age: 75 Year
  Sex: Female
  Weight: 62 kg

DRUGS (11)
  1. FORTEO [Suspect]
     Indication: OSTEOPOROSIS
     Dosage: 20 UG DAY
     Dates: start: 20040909
  2. NAPROXEN SODIUM [Concomitant]
  3. ACETAMINOPHEN [Concomitant]
  4. LAMALINE [Concomitant]
  5. PANTOPRAZOLE SODIUM [Concomitant]
  6. CHONDROSULF (CHONDROITIN SULFATE SODIUM) [Concomitant]
  7. CIBADREX [Concomitant]
  8. AMLODIPINE BESYLATE [Concomitant]
  9. ACEBUTOLOL [Concomitant]
  10. NATISPRAY (GLYCERYL TRINITRATE) [Concomitant]
  11. KARDEGIC(ACETYLSALICYLATE LYSINE) [Concomitant]

REACTIONS (1)
  - ARRHYTHMIA [None]
